FAERS Safety Report 6332563-3 (Version None)
Quarter: 2009Q3

REPORT INFORMATION
  Report Type: 
  Country: None (occurrence: None)
  Receive Date: 20090826
  Receipt Date: 20090813
  Transmission Date: 20100115
  Serious: Yes (Hospitalization)
  Sender: FDA-Public Use
  Company Number: 230474K09USA

PATIENT
  Age: 61 Year
  Sex: Male
  Weight: 95 kg

DRUGS (3)
  1. REBIF [Suspect]
     Indication: MULTIPLE SCLEROSIS
     Dosage: 44 MCG, 3 IN 1 WEEKS, SUBCUTANEOUS
     Route: 058
     Dates: start: 20080718
  2. UNSPECIFIED MEDICATIONS FOR HYPERTENSION (ANTIHYPERTENSIVES) [Concomitant]
  3. UNSPECIFIED MEDICATIONS FOR CORONARY ARTERY DISEASE [Concomitant]

REACTIONS (4)
  - BLADDER PERFORATION [None]
  - BLOOD URINE PRESENT [None]
  - INTESTINAL POLYP [None]
  - LARGE INTESTINE PERFORATION [None]
